FAERS Safety Report 23527349 (Version 1)
Quarter: 2024Q1

REPORT INFORMATION
  Report Type: Spontaneous
  Country: FR (occurrence: FR)
  Receive Date: 20240215
  Receipt Date: 20240215
  Transmission Date: 20240410
  Serious: Yes (Death, Other)
  Sender: FDA-Public Use
  Company Number: FR-AMGEN-FRASP2024029289

PATIENT

DRUGS (2)
  1. BEVACIZUMAB [Suspect]
     Active Substance: BEVACIZUMAB
     Indication: Hepatocellular carcinoma
     Dosage: UNK
     Route: 065
  2. ATEZOLIZUMAB [Concomitant]
     Active Substance: ATEZOLIZUMAB
     Indication: Hepatocellular carcinoma
     Dosage: UNK
     Route: 065

REACTIONS (9)
  - Death [Fatal]
  - Hepatic failure [Fatal]
  - Hepatocellular carcinoma [Fatal]
  - Immune-mediated myocarditis [Fatal]
  - Immune-mediated adverse reaction [Unknown]
  - Immune-mediated hepatitis [Unknown]
  - Immune-mediated enterocolitis [Unknown]
  - Psoriasis [Unknown]
  - Off label use [Unknown]
